FAERS Safety Report 8321650-6 (Version None)
Quarter: 2012Q2

REPORT INFORMATION
  Report Type: 
  Country: None (occurrence: None)
  Receive Date: 20120430
  Receipt Date: 20120420
  Transmission Date: 20120825
  Serious: Yes (Hospitalization)
  Sender: FDA-Public Use
  Company Number: IN-SANOFI-AVENTIS-2012SA013932

PATIENT
  Age: 46 Year
  Sex: Male
  Weight: 65 kg

DRUGS (5)
  1. DOCETAXEL [Suspect]
     Indication: NON-SMALL CELL LUNG CANCER STAGE IV
     Dosage: EVERY 3 WEEKS (DAY 1 OF 21 DAY CYCLE)
     Route: 041
     Dates: start: 20120209, end: 20120209
  2. RANITIDINE [Concomitant]
     Indication: PREMEDICATION
     Dates: start: 20120209, end: 20120209
  3. DEXAMETHASONE [Concomitant]
     Indication: PREMEDICATION
     Dates: start: 20120207, end: 20120210
  4. GRANISETRON [Concomitant]
     Indication: PREMEDICATION
     Dates: start: 20120209, end: 20120209
  5. BLINDED THERAPY [Suspect]
     Indication: NON-SMALL CELL LUNG CANCER STAGE IV
     Dosage: EVERY 3 WEEKS (DAY 1 OF 21 DAY CYCLE)
     Route: 042
     Dates: start: 20120209, end: 20120209

REACTIONS (2)
  - DYSPNOEA [None]
  - HYPONATRAEMIA [None]
